FAERS Safety Report 11682131 (Version 3)
Quarter: 2015Q4

REPORT INFORMATION
  Report Type: Spontaneous
  Country: US (occurrence: US)
  Receive Date: 20151029
  Receipt Date: 20151118
  Transmission Date: 20160304
  Serious: Yes (Hospitalization)
  Sender: FDA-Public Use
  Company Number: US-BIOGENIDEC-2015BI139154

PATIENT
  Age: 58 Year
  Sex: Female

DRUGS (2)
  1. AVONEX [Suspect]
     Active Substance: INTERFERON BETA-1A
     Indication: MULTIPLE SCLEROSIS
     Route: 030
     Dates: start: 19981101
  2. AVONEX [Suspect]
     Active Substance: INTERFERON BETA-1A
     Indication: MULTIPLE SCLEROSIS
     Route: 030
     Dates: start: 201411

REACTIONS (9)
  - Visual impairment [Not Recovered/Not Resolved]
  - Multiple sclerosis relapse [Recovered/Resolved]
  - Mental status changes [Recovered/Resolved]
  - Seizure [Recovered/Resolved]
  - Aphasia [Recovered/Resolved]
  - Hypopnoea [Recovered/Resolved]
  - Loss of consciousness [Recovered/Resolved]
  - Balance disorder [Not Recovered/Not Resolved]
  - Cognitive disorder [Recovered/Resolved]

NARRATIVE: CASE EVENT DATE: 201510
